FAERS Safety Report 15751250 (Version 1)
Quarter: 2018Q4

REPORT INFORMATION
  Report Type: Spontaneous
  Country: US (occurrence: US)
  Receive Date: 20181206
  Receipt Date: 20181206
  Transmission Date: 20190205
  Serious: Yes (Other)
  Sender: FDA-Public Use
  Company Number: None

PATIENT
  Sex: Female

DRUGS (1)
  1. IBRANCE [Suspect]
     Active Substance: PALBOCICLIB
     Indication: BREAST CANCER
     Dosage: ?          OTHER FREQUENCY:QD 21 DAY ON 7 OFF;?
     Route: 048

REACTIONS (5)
  - Dizziness [None]
  - Blood count abnormal [None]
  - Contusion [None]
  - Otorrhoea [None]
  - Fall [None]
